FAERS Safety Report 8856520 (Version 1)
Quarter: 2012Q4

REPORT INFORMATION
  Report Type: Spontaneous
  Country: GB (occurrence: None)
  Receive Date: 20121018
  Receipt Date: 20121018
  Transmission Date: 20130627
  Serious: Yes (Other)
  Sender: FDA-Public Use
  Company Number: AUR-APL-2012-04387

PATIENT
  Age: 57 Year
  Sex: Female
  Weight: 50.8 kg

DRUGS (5)
  1. LAMOTRIGINE (LAMOTRIGINE) [Suspect]
     Indication: MOOD VARIABLE
     Route: 048
     Dates: start: 20120610, end: 201206
  2. TOPIRAMATE (TOPIRAMATE) [Suspect]
     Indication: MOOD VARIABLE
     Route: 048
     Dates: start: 20120722, end: 2012
  3. DULOXETINE (DULOXETINE) [Concomitant]
  4. LEVOTHYROXINE (LEVOTHYROXINE) [Concomitant]
  5. ZOPICLONE (ZOPICLONE) [Concomitant]

REACTIONS (5)
  - Oral mucosal exfoliation [None]
  - Mouth ulceration [None]
  - Incorrect dose administered [None]
  - Medication error [None]
  - Poikilocytosis [None]
